FAERS Safety Report 25577108 (Version 1)
Quarter: 2025Q3

REPORT INFORMATION
  Report Type: Spontaneous
  Country: CN (occurrence: CN)
  Receive Date: 20250718
  Receipt Date: 20250718
  Transmission Date: 20251020
  Serious: Yes (Life-Threatening, Other)
  Sender: BAYER HEALTHCARE PHARMACEUTICALS INC.
  Company Number: CN-BAYER-2025A094365

PATIENT
  Age: 63 Year
  Sex: Male
  Weight: 90 kg

DRUGS (2)
  1. ULTRAVIST [Suspect]
     Active Substance: IOPROMIDE
     Indication: Computerised tomogram heart
     Route: 042
     Dates: start: 20250702, end: 20250702
  2. ULTRAVIST [Suspect]
     Active Substance: IOPROMIDE
     Indication: Atrial fibrillation

REACTIONS (9)
  - Anaphylactic shock [Recovering/Resolving]
  - Erythema [None]
  - Respiratory rate increased [Not Recovered/Not Resolved]
  - Swelling face [None]
  - Blood pressure diastolic decreased [Recovered/Resolved]
  - Oxygen saturation decreased [Recovered/Resolved]
  - Dizziness [None]
  - Chest discomfort [None]
  - Heart rate increased [Not Recovered/Not Resolved]

NARRATIVE: CASE EVENT DATE: 20250702
